FAERS Safety Report 6893719-4 (Version None)
Quarter: 2010Q3

REPORT INFORMATION
  Report Type: 
  Country: None (occurrence: None)
  Receive Date: 20100801
  Receipt Date: 20100728
  Transmission Date: 20110219
  Serious: Yes (Other)
  Sender: FDA-Public Use
  Company Number: US-BRISTOL-MYERS SQUIBB COMPANY-15181316

PATIENT
  Age: 67 Year
  Sex: Male
  Weight: 98 kg

DRUGS (9)
  1. COUMADIN [Suspect]
     Indication: ATRIAL FIBRILLATION
     Dosage: ONE 5MG TABLET AND 1/4 OF A 5MG TABLET.
  2. GLUCOPHAGE [Suspect]
     Dates: start: 20100101
  3. WARFARIN SODIUM [Suspect]
  4. DETROL [Suspect]
     Dates: start: 20100101
  5. BENICAR [Concomitant]
  6. SECTRAL [Concomitant]
  7. CLONAZEPAM [Concomitant]
  8. CLONIDINE [Concomitant]
  9. ROBAXIN [Concomitant]

REACTIONS (2)
  - BLUE TOE SYNDROME [None]
  - INTERNATIONAL NORMALISED RATIO DECREASED [None]
